FAERS Safety Report 22100567 (Version 1)
Quarter: 2023Q1

REPORT INFORMATION
  Report Type: Spontaneous
  Country: US (occurrence: None)
  Receive Date: 20230316
  Receipt Date: 20230316
  Transmission Date: 20230418
  Serious: No
  Sender: FDA-Public Use
  Company Number: 2023A038512

PATIENT
  Sex: Male

DRUGS (2)
  1. IMFINZI [Suspect]
     Active Substance: DURVALUMAB
     Route: 042
  2. TECENTRIQ [Concomitant]
     Active Substance: ATEZOLIZUMAB

REACTIONS (3)
  - Back pain [Unknown]
  - Dyspnoea [Unknown]
  - Blood pressure decreased [Unknown]
